FAERS Safety Report 5787916-9 (Version None)
Quarter: 2008Q2

REPORT INFORMATION
  Report Type: 
  Country: None (occurrence: None)
  Receive Date: 20080625
  Receipt Date: 20080619
  Transmission Date: 20081010
  Serious: Yes (Other)
  Sender: FDA-Public Use
  Company Number: B0359528A

PATIENT
  Sex: Female

DRUGS (14)
  1. SEROXAT [Suspect]
     Indication: DEPRESSION
     Dosage: 20MG PER DAY
     Route: 065
     Dates: start: 19991206
  2. PROZAC [Concomitant]
     Route: 065
     Dates: start: 19991103, end: 19991206
  3. CIPRAMIL [Concomitant]
     Route: 065
     Dates: start: 20000302, end: 20001201
  4. AMITRIPTYLINE HCL [Concomitant]
     Route: 065
     Dates: start: 19900913
  5. FLUOXETINE HCL [Concomitant]
     Dates: start: 20000117, end: 20000302
  6. IMIPRAMINE [Concomitant]
     Dates: start: 20010123
  7. ORLISTAT [Concomitant]
     Dates: start: 20020404
  8. HRT [Concomitant]
     Dates: start: 20020101
  9. OMEPRAZOLE [Concomitant]
     Dates: start: 20040201
  10. REDUCTIL [Concomitant]
     Dates: start: 20040101
  11. MEFENAMIC ACID [Concomitant]
     Dates: start: 20060101
  12. ZYBAN [Concomitant]
     Dates: start: 20061201
  13. ALBUTEROL [Concomitant]
     Route: 055
  14. BECLOMETHASONE DIPROPIONATE [Concomitant]
     Route: 055

REACTIONS (26)
  - ABNORMAL DREAMS [None]
  - AGITATION [None]
  - AMNESIA [None]
  - CONFUSIONAL STATE [None]
  - DEPENDENCE [None]
  - DEPRESSED MOOD [None]
  - DIARRHOEA [None]
  - DIZZINESS [None]
  - DRUG DEPENDENCE [None]
  - DRUG WITHDRAWAL SYNDROME [None]
  - EMOTIONAL DISTRESS [None]
  - HEADACHE [None]
  - HYPERHIDROSIS [None]
  - IRRITABILITY [None]
  - LETHARGY [None]
  - MEMORY IMPAIRMENT [None]
  - MIDDLE INSOMNIA [None]
  - MOOD ALTERED [None]
  - NIGHTMARE [None]
  - PARAESTHESIA [None]
  - SLEEP DISORDER [None]
  - STRESS URINARY INCONTINENCE [None]
  - SUICIDAL IDEATION [None]
  - SUICIDE ATTEMPT [None]
  - TREMOR [None]
  - VISUAL DISTURBANCE [None]
